FAERS Safety Report 24747130 (Version 1)
Quarter: 2024Q4

REPORT INFORMATION
  Report Type: Spontaneous
  Country: SI (occurrence: SI)
  Receive Date: 20241218
  Receipt Date: 20241218
  Transmission Date: 20250115
  Serious: Yes (Other)
  Sender: AMGEN
  Company Number: SI-AMGEN-SVNSP2024244807

PATIENT
  Age: 25 Year
  Sex: Male

DRUGS (2)
  1. ECULIZUMAB [Suspect]
     Active Substance: ECULIZUMAB
     Indication: Thrombotic microangiopathy
     Dosage: UNK
     Route: 065
  2. HUMAN PLASMA [Concomitant]
     Active Substance: HUMAN PLASMA
     Indication: Thrombotic microangiopathy
     Dosage: UNK

REACTIONS (2)
  - End stage renal disease [Unknown]
  - Drug ineffective [Unknown]
